FAERS Safety Report 9003332 (Version 5)
Quarter: 2013Q3

REPORT INFORMATION
  Report Type: Spontaneous
  Country: US (occurrence: US)
  Receive Date: 20130108
  Receipt Date: 20130919
  Transmission Date: 20140515
  Serious: Yes (Hospitalization, Disabling, Other)
  Sender: FDA-Public Use
  Company Number: US-009507513-1301USA001502

PATIENT
  Sex: Female
  Weight: 70.75 kg

DRUGS (10)
  1. FOSAMAX [Suspect]
     Indication: OSTEOPOROSIS PROPHYLAXIS
     Dosage: 70 MG, QW
     Route: 048
     Dates: start: 2003, end: 20110127
  2. FOSAMAX [Suspect]
     Dosage: 70 UNK, UNK
     Route: 048
     Dates: start: 20110217, end: 20111001
  3. ALENDRONATE SODIUM [Suspect]
     Indication: OSTEOPENIA
     Dosage: 70 MG, QW
     Route: 048
     Dates: start: 2002, end: 2011
  4. ALENDRONATE SODIUM [Suspect]
     Indication: OSTEOPOROSIS PROPHYLAXIS
  5. CALCIUM (UNSPECIFIED) [Concomitant]
  6. VITAMIN D (UNSPECIFIED) [Concomitant]
  7. VITAMIN E [Concomitant]
  8. VITAMINS (UNSPECIFIED) [Concomitant]
  9. CENTRUM (MINERALS (UNSPECIFIED) (+) VITAMINS (UNSPECIFIED)) [Concomitant]
  10. IMMUNOTHERAPY (UNSPECIFIED) [Concomitant]
     Dosage: UNK
     Dates: start: 1989, end: 2011

REACTIONS (28)
  - Femur fracture [Not Recovered/Not Resolved]
  - Intramedullary rod insertion [Unknown]
  - Femur fracture [Unknown]
  - Osteoporosis [Not Recovered/Not Resolved]
  - Stress fracture [Not Recovered/Not Resolved]
  - Low turnover osteopathy [Not Recovered/Not Resolved]
  - Femur fracture [Not Recovered/Not Resolved]
  - Hypersensitivity [Unknown]
  - Hypertension [Unknown]
  - Hypercholesterolaemia [Unknown]
  - Tooth extraction [Unknown]
  - Tooth fracture [Unknown]
  - Endodontic procedure [Unknown]
  - Atrial fibrillation [Unknown]
  - Arthritis [Unknown]
  - Breast cyst excision [Unknown]
  - Hysterectomy [Unknown]
  - Appendicectomy [Unknown]
  - Pulse abnormal [Unknown]
  - Contusion [Unknown]
  - Tinea infection [Unknown]
  - Stress fracture [Unknown]
  - Papilloma excision [Unknown]
  - Cerumen impaction [Unknown]
  - Myocardial ischaemia [Unknown]
  - Cardiac stress test abnormal [Unknown]
  - Myalgia [Unknown]
  - Insomnia [Unknown]
